FAERS Safety Report 10031522 (Version 2)
Quarter: 2014Q2

REPORT INFORMATION
  Report Type: Report from Study
  Country: US (occurrence: US)
  Receive Date: 20140324
  Receipt Date: 20140624
  Transmission Date: 20141212
  Serious: Yes (Death, Other)
  Sender: FDA-Public Use
  Company Number: US-ALEXION PHARMACEUTICALS INC.-A201102237

PATIENT
  Age: 71 Year
  Sex: Male

DRUGS (1)
  1. SOLIRIS [Suspect]
     Indication: PAROXYSMAL NOCTURNAL HAEMOGLOBINURIA
     Route: 042

REACTIONS (12)
  - Death [Fatal]
  - Myocardial infarction [Unknown]
  - Vascular graft [Unknown]
  - Marrow hyperplasia [Unknown]
  - Red blood cell count decreased [Unknown]
  - Quality of life decreased [Unknown]
  - Dyspnoea [Unknown]
  - Back pain [Unknown]
  - Haemoglobinuria [Unknown]
  - Abdominal pain [Unknown]
  - Fatigue [Unknown]
  - Hiatus hernia [Unknown]
